FAERS Safety Report 21334961 (Version 1)
Quarter: 2022Q3

REPORT INFORMATION
  Report Type: Spontaneous
  Country: US (occurrence: None)
  Receive Date: 20220914
  Receipt Date: 20220914
  Transmission Date: 20221027
  Serious: No
  Sender: FDA-Public Use
  Company Number: None

PATIENT
  Age: 69 Year
  Sex: Male
  Weight: 90.49 kg

DRUGS (31)
  1. RETACRIT [Suspect]
     Active Substance: EPOETIN ALFA-EPBX
     Indication: Bladder cancer
     Dosage: 40000 UNITS ONCE WEEK SUBCUTANEOUSLY?
     Route: 058
  2. XGEVA [Suspect]
     Active Substance: DENOSUMAB
     Indication: Bladder cancer
     Dosage: 120MG  Q28DAYS SUBCUTANEOUSLY?
     Route: 058
  3. ACETAMINOPHEN [Concomitant]
     Active Substance: ACETAMINOPHEN
  4. AMITRIPTYLINE [Concomitant]
     Active Substance: AMITRIPTYLINE
  5. ASCORBIC ACID [Concomitant]
     Active Substance: ASCORBIC ACID
  6. ASPIRIN [Concomitant]
     Active Substance: ASPIRIN
  7. ATORVASTATIN [Concomitant]
  8. CIPLASTIN [Concomitant]
  9. BREO ELLIPTA [Concomitant]
     Active Substance: FLUTICASONE FUROATE\VILANTEROL TRIFENATATE
  10. COLACE [Concomitant]
     Active Substance: DOCUSATE SODIUM
  11. CRANBERRY [Concomitant]
     Active Substance: CRANBERRY
  12. DEXAMETHASONE [Concomitant]
     Active Substance: DEXAMETHASONE
  13. ELIQUIS [Concomitant]
     Active Substance: APIXABAN
  14. FAMOTIDINE [Concomitant]
     Active Substance: FAMOTIDINE
  15. FIORICET [Concomitant]
     Active Substance: ACETAMINOPHEN\BUTALBITAL\CAFFEINE
  16. FOLIC ACID [Concomitant]
     Active Substance: FOLIC ACID
  17. FOSAPREPITANT [Concomitant]
     Active Substance: FOSAPREPITANT
  18. GEMCITABINE [Concomitant]
     Active Substance: GEMCITABINE
  19. LOPROX [Concomitant]
     Active Substance: CICLOPIROX\CICLOPIROX OLAMINE
  20. MIRAPEX [Concomitant]
     Active Substance: PRAMIPEXOLE DIHYDROCHLORIDE
  21. VITAMINS [Concomitant]
     Active Substance: VITAMINS
  22. NEUPOGEN [Concomitant]
     Active Substance: FILGRASTIM
  23. ONDANSETRON [Concomitant]
     Active Substance: ONDANSETRON
  24. PANTOPRAZOLE [Concomitant]
     Active Substance: PANTOPRAZOLE
  25. PREDNISONE [Concomitant]
     Active Substance: PREDNISONE
  26. RETACRIT [Concomitant]
     Active Substance: EPOETIN ALFA-EPBX
  27. SINGULAIR [Concomitant]
     Active Substance: MONTELUKAST SODIUM
  28. SUCRALFATE [Concomitant]
     Active Substance: SUCRALFATE
  29. TECENTRIQ [Concomitant]
     Active Substance: ATEZOLIZUMAB
  30. ULTRAM [Concomitant]
     Active Substance: TRAMADOL HYDROCHLORIDE
  31. VENTOLIN [Concomitant]
     Active Substance: ALBUTEROL SULFATE

REACTIONS (1)
  - Hospice care [None]
